FAERS Safety Report 11929949 (Version 1)
Quarter: 2016Q1

REPORT INFORMATION
  Report Type: Spontaneous
  Country: DE (occurrence: DE)
  Receive Date: 20160120
  Receipt Date: 20160120
  Transmission Date: 20160526
  Serious: Yes (Life-Threatening, Hospitalization)
  Sender: FDA-Public Use
  Company Number: DE-ASTRAZENECA-2016SE05151

PATIENT
  Age: 22457 Day
  Sex: Male
  Weight: 103 kg

DRUGS (1)
  1. FORXIGA [Suspect]
     Active Substance: DAPAGLIFLOZIN
     Dosage: DAILY
     Route: 048
     Dates: start: 20150923

REACTIONS (4)
  - Urinary tract infection [Unknown]
  - Renal failure [Unknown]
  - Postrenal failure [Unknown]
  - Hydronephrosis [Unknown]

NARRATIVE: CASE EVENT DATE: 20151028
